FAERS Safety Report 22105188 (Version 3)
Quarter: 2023Q2

REPORT INFORMATION
  Report Type: Report from Study
  Country: US (occurrence: US)
  Receive Date: 20230316
  Receipt Date: 20230606
  Transmission Date: 20230722
  Serious: No
  Sender: FDA-Public Use
  Company Number: US-002147023-NVSC2023US060411

PATIENT
  Sex: Female

DRUGS (1)
  1. KISQALI [Suspect]
     Active Substance: RIBOCICLIB
     Indication: Product used for unknown indication
     Dosage: UNK
     Route: 048

REACTIONS (11)
  - Gait disturbance [Unknown]
  - Malaise [Unknown]
  - Peripheral swelling [Unknown]
  - Rash [Unknown]
  - Abdominal pain upper [Unknown]
  - Cough [Unknown]
  - Abdominal discomfort [Unknown]
  - Flatulence [Unknown]
  - Gastrointestinal disorder [Unknown]
  - Abdominal distension [Unknown]
  - Nausea [Unknown]
